FAERS Safety Report 4913991-7 (Version None)
Quarter: 2006Q1

REPORT INFORMATION
  Report Type: 
  Country: None (occurrence: None)
  Receive Date: 20060113
  Receipt Date: 20051115
  Transmission Date: 20060701
  Serious: No
  Sender: FDA-Public Use
  Company Number: 2005SP004007

PATIENT
  Age: 66 Year
  Sex: Female
  Weight: 77.5651 kg

DRUGS (5)
  1. LUNESTA [Suspect]
     Indication: INSOMNIA
     Dosage: 3MG HS ORAL
     Route: 048
     Dates: start: 20050601, end: 20051101
  2. IMDUR [Concomitant]
  3. TOPROL-XL [Concomitant]
  4. ESTROGENS CONJUGATED [Concomitant]
  5. AVALIDE [Concomitant]

REACTIONS (3)
  - DRUG INEFFECTIVE [None]
  - DYSGEUSIA [None]
  - INSOMNIA [None]
